FAERS Safety Report 8948188 (Version 2)
Quarter: 2013Q2

REPORT INFORMATION
  Report Type: Spontaneous
  Country: JP (occurrence: JP)
  Receive Date: 20121204
  Receipt Date: 20130409
  Transmission Date: 20140414
  Serious: Yes (Hospitalization)
  Sender: FDA-Public Use
  Company Number: JP-ELI_LILLY_AND_COMPANY-JP201210002073

PATIENT
  Age: 34 Year
  Sex: Female
  Weight: 74 kg

DRUGS (7)
  1. ZYPREXA [Suspect]
     Indication: SCHIZOPHRENIA
     Dosage: 5 MG, QD
     Route: 048
     Dates: end: 201208
  2. ZYPREXA [Suspect]
     Dosage: 5 MG, QD
     Route: 048
     Dates: start: 2012, end: 2012
  3. ZYPREXA [Suspect]
     Dosage: 10 MG, QD
     Dates: start: 2012
  4. JZOLOFT [Concomitant]
     Dosage: UNK
     Dates: end: 201208
  5. AMOXAN [Concomitant]
     Dosage: UNK
     Dates: end: 201208
  6. QUAZEPAM [Concomitant]
     Dosage: UNK
     Dates: end: 201208
  7. HALRACK [Concomitant]
     Dosage: UNK
     Dates: end: 201208

REACTIONS (4)
  - Multiple injuries [Recovering/Resolving]
  - Suicide attempt [Recovering/Resolving]
  - Intentional drug misuse [Recovered/Resolved]
  - Sedation [Unknown]
